FAERS Safety Report 8958609 (Version 1)
Quarter: 2012Q4

REPORT INFORMATION
  Report Type: Spontaneous
  Country: US (occurrence: None)
  Receive Date: 20121203
  Receipt Date: 20121203
  Transmission Date: 20130627
  Serious: Yes (Other)
  Sender: FDA-Public Use
  Company Number: HA12-344-AE (PATIENT NO. 1)

PATIENT
  Age: 35 Year
  Sex: Female
  Weight: 74.84 kg

DRUGS (1)
  1. IBUPROFEN [Suspect]
     Indication: MENSTRUAL CRAMPS
     Dosage: since years - 10/16/2012
1 Tablet,  for 1 dose, Oral
     Route: 048
     Dates: end: 20121016

REACTIONS (7)
  - Oral pain [None]
  - Paraesthesia oral [None]
  - Oral discomfort [None]
  - Drug hypersensitivity [None]
  - Dermatitis contact [None]
  - Dry mouth [None]
  - Tongue disorder [None]
